FAERS Safety Report 14015365 (Version 4)
Quarter: 2019Q1

REPORT INFORMATION
  Report Type: Spontaneous
  Country: US (occurrence: US)
  Receive Date: 20170927
  Receipt Date: 20190301
  Transmission Date: 20190417
  Serious: Yes (Hospitalization, Other)
  Sender: FDA-Public Use
  Company Number: US-PFIZER INC-2017415278

PATIENT
  Age: 19 Year
  Sex: Female

DRUGS (10)
  1. LYRICA [Suspect]
     Active Substance: PREGABALIN
     Dosage: 200MG ONCE A DAY AND 50MG ONCE A DAY WITH THE OPTION TO TAKE AN EXTRA 200MG OR 50MG DOSE IF NEEDED
     Dates: start: 2017
  2. TIZANIDINE. [Concomitant]
     Active Substance: TIZANIDINE
     Indication: MUSCULOSKELETAL DISCOMFORT
     Dosage: 4 MG, 1X/DAY
     Dates: start: 2009
  3. LYRICA [Suspect]
     Active Substance: PREGABALIN
     Dosage: 25 MG, AS NEEDED [QID (FOUR TIMES A DAY) PRN]
     Route: 048
  4. CEVIMELINE. [Concomitant]
     Active Substance: CEVIMELINE
     Indication: DRY EYE
     Dosage: 30 MG, 2X/DAY
     Dates: start: 2009
  5. LYRICA [Suspect]
     Active Substance: PREGABALIN
     Indication: TRIGEMINAL NEURALGIA
     Dosage: 200MG THREE TIMES A DAY WITH AN EXTRA PRESCRIPTION OF 50MG
  6. LYRICA [Suspect]
     Active Substance: PREGABALIN
     Dosage: 200MG TWICE A DAY ALSO TAKING A 50MG DOSE IN THE AFTERNOON
  7. LYRICA [Suspect]
     Active Substance: PREGABALIN
     Dosage: 200 MG, 3X/DAY (W/ 50MG AS NEEDED)
     Dates: start: 2008
  8. TRILEPTAL [Concomitant]
     Active Substance: OXCARBAZEPINE
     Indication: TRIGEMINAL NEURALGIA
     Dosage: 600MG TWICE A DAY AND 300MG IN THE AFTERNOON/ AT LUNCH
     Dates: start: 2009
  9. LYRICA [Suspect]
     Active Substance: PREGABALIN
     Dosage: 200 MG, 3X/DAY
     Route: 048
  10. BACLOFEN. [Concomitant]
     Active Substance: BACLOFEN
     Indication: TRIGEMINAL NEURALGIA
     Dosage: 10 MG 1 TAB TID W/ 1 AS NEEDED
     Dates: start: 2009

REACTIONS (5)
  - Intentional product use issue [Unknown]
  - Pain [Not Recovered/Not Resolved]
  - Overdose [Recovered/Resolved]
  - Cranial nerve disorder [Not Recovered/Not Resolved]
  - Nerve compression [Not Recovered/Not Resolved]

NARRATIVE: CASE EVENT DATE: 200703
